FAERS Safety Report 19098110 (Version 1)
Quarter: 2021Q2

REPORT INFORMATION
  Report Type: Spontaneous
  Country: US (occurrence: US)
  Receive Date: 20210406
  Receipt Date: 20210406
  Transmission Date: 20210717
  Serious: Yes (Other)
  Sender: FDA-Public Use
  Company Number: US-GLAXOSMITHKLINE-USCH2021016210

PATIENT
  Age: 47 Year
  Sex: Male

DRUGS (2)
  1. CHAPSTICK MOISTURIZER ORIGINAL [Suspect]
     Active Substance: AVOBENZONE\OCTINOXATE\PETROLATUM
     Indication: PRODUCT USED FOR UNKNOWN INDICATION
     Dosage: UNK
  2. CHAPSTICK MOISTURIZER ORIGINAL [Suspect]
     Active Substance: AVOBENZONE\OCTINOXATE\PETROLATUM
     Dosage: UNK

REACTIONS (3)
  - Product complaint [Unknown]
  - Condition aggravated [Unknown]
  - Drug dependence [Unknown]
